FAERS Safety Report 17481377 (Version 1)
Quarter: 2020Q1

REPORT INFORMATION
  Report Type: Report from Study
  Country: US (occurrence: US)
  Receive Date: 20200302
  Receipt Date: 20200302
  Transmission Date: 20200409
  Serious: Yes (Life-Threatening, Hospitalization, Other)
  Sender: FDA-Public Use
  Company Number: US-ROCHE-2553222

PATIENT
  Sex: Female
  Weight: 63.56 kg

DRUGS (1)
  1. OCREVUS [Suspect]
     Active Substance: OCRELIZUMAB
     Indication: MULTIPLE SCLEROSIS
     Route: 042
     Dates: start: 201801, end: 201901

REACTIONS (5)
  - Urinary tract infection [Recovered/Resolved]
  - Ear infection [Recovered/Resolved]
  - Infection susceptibility increased [Not Recovered/Not Resolved]
  - Back pain [Unknown]
  - Sepsis [Recovered/Resolved]

NARRATIVE: CASE EVENT DATE: 2019
